FAERS Safety Report 6508281-5 (Version None)
Quarter: 2009Q4

REPORT INFORMATION
  Report Type: 
  Country: None (occurrence: None)
  Receive Date: 20091221
  Receipt Date: 20090527
  Transmission Date: 20100525
  Serious: No
  Sender: FDA-Public Use
  Company Number: US-ASTRAZENECA-2008UW22525

PATIENT
  Age: 68 Year
  Sex: Male
  Weight: 111.1 kg

DRUGS (14)
  1. CRESTOR [Suspect]
     Indication: BLOOD CHOLESTEROL INCREASED
     Route: 048
     Dates: start: 20080101
  2. CRESTOR [Suspect]
     Route: 048
  3. NIASPAN [Concomitant]
  4. TRILIPIX [Concomitant]
  5. DIGOXIN [Concomitant]
  6. LEXAPRO [Concomitant]
  7. LASIX [Concomitant]
  8. ALLOPURINOL [Concomitant]
     Indication: NEPHROLITHIASIS
  9. XANAX [Concomitant]
  10. AVAPRO [Concomitant]
  11. COREG [Concomitant]
  12. POTASSIUM CITRATE [Concomitant]
  13. ASPIRIN [Concomitant]
  14. FISH OIL [Concomitant]

REACTIONS (4)
  - MYALGIA [None]
  - PAIN IN EXTREMITY [None]
  - VISION BLURRED [None]
  - WEIGHT DECREASED [None]
